FAERS Safety Report 6226196-7 (Version None)
Quarter: 2009Q2

REPORT INFORMATION
  Report Type: 
  Country: None (occurrence: None)
  Receive Date: 20090612
  Receipt Date: 20090511
  Transmission Date: 20091009
  Serious: No
  Sender: FDA-Public Use
  Company Number: US-ABBOTT-09P-163-0572691-00

PATIENT
  Sex: Male
  Weight: 83.99 kg

DRUGS (15)
  1. HUMIRA [Suspect]
     Indication: RHEUMATOID ARTHRITIS
     Route: 058
     Dates: start: 20080101
  2. HUMIRA [Suspect]
     Route: 058
  3. ORTHOTEC [Concomitant]
     Indication: RHEUMATOID ARTHRITIS
  4. ALTACE [Concomitant]
     Indication: BLOOD PRESSURE
  5. PERCOCET [Concomitant]
     Indication: PAIN
     Dosage: Q 6 HRS
  6. LIPITOR [Concomitant]
     Indication: BLOOD CHOLESTEROL
  7. ZETIA [Concomitant]
     Indication: BLOOD CHOLESTEROL
  8. TRAZODONE HCL [Concomitant]
     Indication: INSOMNIA
  9. CYMBALTA [Concomitant]
     Indication: BIPOLAR DISORDER
  10. GABRITRIL [Concomitant]
     Indication: BIPOLAR DISORDER
  11. TEGRETOL [Concomitant]
     Indication: BIPOLAR DISORDER
  12. LOVAZA [Concomitant]
     Indication: DRUG USE FOR UNKNOWN INDICATION
  13. VITAMIN B COMPLEX CAP [Concomitant]
     Indication: DRUG USE FOR UNKNOWN INDICATION
  14. VIT C [Concomitant]
     Indication: DRUG USE FOR UNKNOWN INDICATION
  15. MEDROL [Concomitant]
     Indication: DRUG USE FOR UNKNOWN INDICATION

REACTIONS (1)
  - DRUG INEFFECTIVE [None]
